FAERS Safety Report 23589964 (Version 1)
Quarter: 2024Q1

REPORT INFORMATION
  Report Type: Spontaneous
  Country: US (occurrence: US)
  Receive Date: 20240304
  Receipt Date: 20240304
  Transmission Date: 20240410
  Serious: No
  Sender: FDA-Public Use
  Company Number: US-LEADINGPHARMA-US-2024LEASPO00028

PATIENT
  Sex: Female

DRUGS (3)
  1. FOLIC ACID [Suspect]
     Active Substance: FOLIC ACID
     Indication: Product used for unknown indication
     Route: 065
  2. FERROUS FUMARATE [Suspect]
     Active Substance: FERROUS FUMARATE
     Indication: Product used for unknown indication
     Route: 065
  3. FANSIDAR [Suspect]
     Active Substance: PYRIMETHAMINE\SULFADOXINE
     Indication: Product used for unknown indication
     Route: 065

REACTIONS (3)
  - Vomiting [Unknown]
  - Feeling abnormal [Unknown]
  - Exposure during pregnancy [Unknown]
